FAERS Safety Report 13117022 (Version 4)
Quarter: 2017Q1

REPORT INFORMATION
  Report Type: Report from Study
  Country: IL (occurrence: IL)
  Receive Date: 20170116
  Receipt Date: 20170223
  Transmission Date: 20170428
  Serious: Yes (Hospitalization, Other)
  Sender: FDA-Public Use
  Company Number: PHHY2016IL161884

PATIENT
  Age: 73 Year
  Sex: Female

DRUGS (4)
  1. AFINITOR [Suspect]
     Active Substance: EVEROLIMUS
     Indication: BREAST CANCER
     Dosage: 10 MG, QD
     Route: 048
     Dates: start: 20161116, end: 20161123
  2. AFINITOR [Suspect]
     Active Substance: EVEROLIMUS
     Dosage: 10 MG, QD
     Route: 048
     Dates: start: 20161127, end: 20161227
  3. AUGMENTIN [Concomitant]
     Active Substance: AMOXICILLIN\CLAVULANATE POTASSIUM
     Indication: SINUSITIS
     Dosage: 875 MG, BID
     Route: 065
  4. AROMASIN [Concomitant]
     Active Substance: EXEMESTANE
     Indication: BREAST CANCER
     Route: 065

REACTIONS (20)
  - Pneumonia [Recovered/Resolved]
  - Pyrexia [Recovered/Resolved]
  - Full blood count decreased [Unknown]
  - Oral pain [Recovering/Resolving]
  - Platelet count decreased [Unknown]
  - Cough [Recovering/Resolving]
  - Chills [Recovered/Resolved]
  - Asthenia [Not Recovered/Not Resolved]
  - Drug hypersensitivity [Unknown]
  - Movement disorder [Unknown]
  - Hepatic steatosis [Unknown]
  - Night sweats [Recovered/Resolved]
  - Oral herpes [Recovered/Resolved]
  - Haemoptysis [Recovered/Resolved]
  - Decreased appetite [Recovering/Resolving]
  - White blood cell count decreased [Unknown]
  - Fatigue [Not Recovered/Not Resolved]
  - Haemoglobin decreased [Unknown]
  - Tachycardia [Not Recovered/Not Resolved]
  - Pyrexia [Recovered/Resolved]

NARRATIVE: CASE EVENT DATE: 20161122
